FAERS Safety Report 16494702 (Version 2)
Quarter: 2019Q3

REPORT INFORMATION
  Report Type: Report from Study
  Country: DE (occurrence: DE)
  Receive Date: 20190628
  Receipt Date: 20190710
  Transmission Date: 20191004
  Serious: Yes (Hospitalization)
  Sender: FDA-Public Use
  Company Number: DE-EISAI MEDICAL RESEARCH-EC-2019-055892

PATIENT
  Age: 64 Year
  Sex: Male
  Weight: 80 kg

DRUGS (16)
  1. PREGABALIN. [Concomitant]
     Active Substance: PREGABALIN
  2. BISOPROLOL [Concomitant]
     Active Substance: BISOPROLOL
  3. LOPERAMIDE [Concomitant]
     Active Substance: LOPERAMIDE
  4. LENVATINIB [Suspect]
     Active Substance: LENVATINIB
     Indication: THYROID CANCER
     Route: 048
     Dates: start: 20181018, end: 20190429
  5. L-THYROX [Concomitant]
     Active Substance: LEVOTHYROXINE SODIUM
  6. MAGNESIUM VERLA [Concomitant]
     Active Substance: MAGNESIUM
  7. CALCIUM [Concomitant]
     Active Substance: CALCIUM
  8. ZOMETA [Concomitant]
     Active Substance: ZOLEDRONIC ACID
  9. DEKRISTOL [Concomitant]
     Active Substance: CHOLECALCIFEROL
  10. AMITRIPTYLIN [Concomitant]
     Active Substance: AMITRIPTYLINE
  11. LENVATINIB [Suspect]
     Active Substance: LENVATINIB
     Route: 048
     Dates: start: 20190526, end: 20190619
  12. PANTOPRAZOL [Concomitant]
     Active Substance: PANTOPRAZOLE SODIUM
  13. CALCITRIOL. [Concomitant]
     Active Substance: CALCITRIOL
  14. OXYCODONE [Concomitant]
     Active Substance: OXYCODONE
  15. ALLOPURINOL. [Concomitant]
     Active Substance: ALLOPURINOL
  16. FRESUBIN [Concomitant]
     Active Substance: AMINO ACIDS\DEXTROSE\ELECTROLYTES NOS\SOYBEAN OIL\VITAMINS

REACTIONS (2)
  - Pleural effusion [Recovering/Resolving]
  - Haematuria [Recovered/Resolved]

NARRATIVE: CASE EVENT DATE: 20190430
